FAERS Safety Report 17133286 (Version 1)
Quarter: 2019Q4

REPORT INFORMATION
  Report Type: Spontaneous
  Country: US (occurrence: US)
  Receive Date: 20191116
  Receipt Date: 20191116
  Transmission Date: 20200122
  Serious: No
  Sender: FDA-Public Use
  Company Number: None

PATIENT
  Age: 61 Year
  Sex: Male
  Weight: 97 kg

DRUGS (2)
  1. VINORELBINE TARTRATE. [Suspect]
     Active Substance: VINORELBINE TARTRATE
     Dates: end: 20090505
  2. CISPLATIN. [Suspect]
     Active Substance: CISPLATIN
     Dates: end: 20090505

REACTIONS (4)
  - Anaemia [None]
  - Weight decreased [None]
  - Myelodysplastic syndrome [None]
  - Dyspnoea [None]

NARRATIVE: CASE EVENT DATE: 20180709
